FAERS Safety Report 10430762 (Version 1)
Quarter: 2014Q3

REPORT INFORMATION
  Report Type: Spontaneous
  Country: US (occurrence: US)
  Receive Date: 20140904
  Receipt Date: 20140904
  Transmission Date: 20150326
  Serious: Yes (Death, Other)
  Sender: FDA-Public Use
  Company Number: PHHY2014US109680

PATIENT
  Age: 47 Year
  Sex: Female

DRUGS (1)
  1. DILTIAZEM [Suspect]
     Active Substance: DILTIAZEM

REACTIONS (12)
  - Respiratory failure [Unknown]
  - Pulseless electrical activity [Unknown]
  - Shock [Unknown]
  - Atrioventricular block complete [Unknown]
  - Abdominal compartment syndrome [Unknown]
  - Soft tissue necrosis [Unknown]
  - Overdose [Fatal]
  - Acidosis [Unknown]
  - Hypotension [Unknown]
  - Toxicity to various agents [Fatal]
  - Bradycardia [Unknown]
  - Ischaemia [Unknown]
